FAERS Safety Report 9445209 (Version 1)
Quarter: 2013Q3

REPORT INFORMATION
  Report Type: Spontaneous
  Country: BR (occurrence: BR)
  Receive Date: 20130807
  Receipt Date: 20130807
  Transmission Date: 20140515
  Serious: Yes (Other)
  Sender: FDA-Public Use
  Company Number: BR-ELI_LILLY_AND_COMPANY-BR201307009850

PATIENT
  Sex: Male
  Weight: 73 kg

DRUGS (7)
  1. HUMALOG [Suspect]
     Indication: TYPE 2 DIABETES MELLITUS
     Dosage: 3 IU, QD
     Route: 058
     Dates: start: 1998
  2. HUMALOG [Suspect]
     Dosage: 1 IU, OTHER
     Route: 058
     Dates: start: 1998
  3. LANTUS [Concomitant]
     Dosage: UNK, UNKNOWN
     Route: 065
  4. MAREVAN [Concomitant]
     Indication: ANTICOAGULANT THERAPY
     Dosage: UNK, OTHER
     Route: 065
  5. SERTRALINE [Concomitant]
     Indication: DEPRESSION
     Dosage: 1 DF, QD
     Route: 065
  6. COMPLEX B                          /00653501/ [Concomitant]
     Indication: DIABETES MELLITUS
  7. NORIPURUM [Concomitant]
     Indication: ANAEMIA
     Dosage: 1 DF, QD
     Route: 065

REACTIONS (1)
  - Glaucoma [Unknown]
